FAERS Safety Report 6657013-9 (Version None)
Quarter: 2010Q1

REPORT INFORMATION
  Report Type: 
  Country: None (occurrence: None)
  Receive Date: 20100329
  Receipt Date: 20100329
  Transmission Date: 20100710
  Serious: Yes (Other)
  Sender: FDA-Public Use
  Company Number: None

PATIENT
  Age: 37 Year
  Sex: Female
  Weight: 63.5036 kg

DRUGS (1)
  1. ULTRA SHEER DRY-TOUCH SUNBLOCK 100+ NEUTROGENA [Suspect]
     Indication: PROPHYLAXIS AGAINST SOLAR RADIATION
     Dosage: LIGHT-LEGS + ARMS, HEAVY-HANDS DAILY FOR 3 DAYS CUTANEOUS
     Route: 003
     Dates: start: 20100324, end: 20100326

REACTIONS (7)
  - ERYTHEMA [None]
  - NO THERAPEUTIC RESPONSE [None]
  - OEDEMA PERIPHERAL [None]
  - PAIN [None]
  - RASH GENERALISED [None]
  - RASH MACULAR [None]
  - RASH PRURITIC [None]
